FAERS Safety Report 4356344-5 (Version None)
Quarter: 2004Q2

REPORT INFORMATION
  Report Type: 
  Country: None (occurrence: None)
  Receive Date: 20040506
  Receipt Date: 20040427
  Transmission Date: 20050107
  Serious: Yes (Death)
  Sender: FDA-Public Use
  Company Number: US-SHR-03-015184

PATIENT
  Age: 62 Year
  Sex: Female

DRUGS (19)
  1. BETASERON [Suspect]
     Indication: MULTIPLE SCLEROSIS
     Dates: start: 19930101
  2. ACETANIMOPHEN W/CODEINE (CODEINE) [Concomitant]
  3. ALBUTEROL [Concomitant]
  4. ALTACE [Concomitant]
  5. AMBIEN [Concomitant]
  6. BIAXIN XL [Concomitant]
  7. COUMADIN [Concomitant]
  8. DEMEROL /CAN/ [Concomitant]
  9. DIGOXIN [Concomitant]
  10. LEVORPHANOL (LEVORPHANOL) [Concomitant]
  11. PHENERGAN [Concomitant]
  12. PLAVIX [Concomitant]
  13. PROCRIT (ERYTHROPOIETIN) [Concomitant]
  14. PROMETHAZINE VC W/CODEINE (PROMETHAZINE HYDROCHLORIDE, PHENYLEPHRINE H [Concomitant]
  15. PROMETHAZINE W/CODEINE (PROMETHAZINE, CODEINE) [Concomitant]
  16. SPIRONOLACTONE [Concomitant]
  17. TORSEMIDE (TORASEMIDE) [Concomitant]
  18. ZETIA [Concomitant]
  19. ZITHROMAX [Concomitant]

REACTIONS (3)
  - ACUTE MYOCARDIAL INFARCTION [None]
  - ARTERIOSCLEROSIS [None]
  - CORONARY ARTERY ATHEROSCLEROSIS [None]
